FAERS Safety Report 24524472 (Version 6)
Quarter: 2024Q4

REPORT INFORMATION
  Report Type: Spontaneous
  Country: KR (occurrence: KR)
  Receive Date: 20241019
  Receipt Date: 20241221
  Transmission Date: 20250115
  Serious: Yes (Hospitalization, Other)
  Sender: UNITED THERAPEUTICS
  Company Number: KR-UNITED THERAPEUTICS-UNT-2024-032698

PATIENT
  Sex: Male
  Weight: 83.5 kg

DRUGS (6)
  1. REMODULIN [Suspect]
     Active Substance: TREPROSTINIL
     Indication: Pulmonary arterial hypertension
     Dosage: 0.028 ?G/KG, CONTINUING
  2. REMODULIN [Suspect]
     Active Substance: TREPROSTINIL
     Dosage: 0.028 ?G/KG, CONTINUING
     Dates: start: 20241015, end: 20241017
  3. REMODULIN [Suspect]
     Active Substance: TREPROSTINIL
     Dosage: 0.020 ?G/KG, CONTINUING
  4. REMODULIN [Suspect]
     Active Substance: TREPROSTINIL
     Dosage: 0.022 ?G/KG, CONTINUING
  5. REMODULIN [Suspect]
     Active Substance: TREPROSTINIL
     Dosage: UNK, CONTINUING
  6. LASIX [Concomitant]
     Active Substance: FUROSEMIDE
     Indication: Ascites
     Dosage: UNK

REACTIONS (7)
  - Ascites [Recovered/Resolved]
  - Pyrexia [Recovered/Resolved]
  - Infusion site discharge [Recovered/Resolved]
  - Infusion site swelling [Recovered/Resolved]
  - Infusion site inflammation [Recovered/Resolved]
  - Infusion site pain [Recovered/Resolved]
  - Infusion site scab [Recovered/Resolved]

NARRATIVE: CASE EVENT DATE: 20240101
